FAERS Safety Report 22348058 (Version 2)
Quarter: 2023Q2

REPORT INFORMATION
  Report Type: Spontaneous
  Country: ES (occurrence: None)
  Receive Date: 20230522
  Receipt Date: 20230607
  Transmission Date: 20230721
  Serious: Yes (Other)
  Sender: FDA-Public Use
  Company Number: 2023A115654

PATIENT
  Sex: Male

DRUGS (1)
  1. FASENRA [Suspect]
     Active Substance: BENRALIZUMAB
     Dosage: 30
     Route: 058

REACTIONS (3)
  - Blood pressure abnormal [Unknown]
  - Pyrexia [Unknown]
  - Oxygen saturation increased [Unknown]

NARRATIVE: CASE EVENT DATE: 20230517
